FAERS Safety Report 5484526-8 (Version None)
Quarter: 2007Q4

REPORT INFORMATION
  Report Type: 
  Country: None (occurrence: None)
  Receive Date: 20071010
  Receipt Date: 20070925
  Transmission Date: 20080405
  Serious: Yes (Life-Threatening, Hospitalization)
  Sender: FDA-Public Use
  Company Number: 2007S1009348

PATIENT
  Age: 29 Year
  Sex: Female

DRUGS (2)
  1. VERAPAMIL [Suspect]
     Dosage: 3.6 GM; X1
  2. SOTALOL HCL [Suspect]
     Dosage: 4.8 GM; X1

REACTIONS (7)
  - CARDIAC ARREST [None]
  - CIRCULATORY COLLAPSE [None]
  - GASTROINTESTINAL HAEMORRHAGE [None]
  - PARALYSIS [None]
  - RENAL FAILURE [None]
  - RHABDOMYOLYSIS [None]
  - THERAPEUTIC AGENT TOXICITY [None]
